FAERS Safety Report 5154525-4 (Version None)
Quarter: 2006Q4

REPORT INFORMATION
  Report Type: 
  Country: None (occurrence: None)
  Receive Date: 20061120
  Receipt Date: 20061114
  Transmission Date: 20070319
  Serious: Yes (Hospitalization)
  Sender: FDA-Public Use
  Company Number: US-MERCK-0611USA04702B1

PATIENT
  Sex: Male
  Weight: 2 kg

DRUGS (4)
  1. DECADRON [Suspect]
     Indication: PROPHYLAXIS OF NAUSEA AND VOMITING
     Route: 064
  2. ONDANSETRON HCL [Concomitant]
     Indication: PROPHYLAXIS OF NAUSEA AND VOMITING
     Route: 064
  3. PROMETHAZINE [Concomitant]
     Route: 064
  4. MEDICINALPRODUCT NOT SPECIFIED BY SENDER [Concomitant]
     Indication: CHEMOTHERAPY
     Route: 064

REACTIONS (13)
  - CAESAREAN SECTION [None]
  - CYANOSIS NEONATAL [None]
  - DEVELOPMENTAL DELAY [None]
  - DRUG EXPOSURE DURING PREGNANCY [None]
  - HYPOKINESIA [None]
  - NEONATAL PNEUMONIA [None]
  - NEONATAL RESPIRATORY DISTRESS SYNDROME [None]
  - NEONATAL RESPIRATORY FAILURE [None]
  - PLATELET COUNT INCREASED [None]
  - PREMATURE BABY [None]
  - PSYCHOMOTOR SKILLS IMPAIRED [None]
  - RESPIRATORY DISTRESS [None]
  - SEPSIS NEONATAL [None]
